FAERS Safety Report 5266836-2 (Version None)
Quarter: 2007Q1

REPORT INFORMATION
  Report Type: 
  Country: None (occurrence: None)
  Receive Date: 20070222
  Receipt Date: 20070208
  Transmission Date: 20070707
  Serious: Yes (Hospitalization)
  Sender: FDA-Public Use
  Company Number: WSDF_00595

PATIENT
  Age: 83 Year
  Sex: Male
  Weight: 78.5 kg

DRUGS (8)
  1. WINRHO SDF [Suspect]
     Indication: IDIOPATHIC THROMBOCYTOPENIC PURPURA
     Dosage: 20000 IU ONCE; IV
     Route: 042
     Dates: start: 20061101, end: 20061101
  2. PREDNISOLONE [Concomitant]
  3. OMEPRAZOLE [Concomitant]
  4. DIGOXIN [Concomitant]
  5. SENNA [Concomitant]
  6. PROCHLORPERAZINE [Concomitant]
  7. CO-AMILOFRUSE [Concomitant]
  8. CO-DYDRAMOLE [Concomitant]

REACTIONS (1)
  - PULMONARY EMBOLISM [None]
